FAERS Safety Report 5073663-8 (Version None)
Quarter: 2006Q3

REPORT INFORMATION
  Report Type: 
  Country: None (occurrence: None)
  Receive Date: 20060808
  Receipt Date: 20050309
  Transmission Date: 20061208
  Serious: No
  Sender: FDA-Public Use
  Company Number: US-AMGEN-US120007

PATIENT
  Sex: Female
  Weight: 115.5 kg

DRUGS (15)
  1. EPOGEN [Suspect]
     Indication: DIALYSIS
     Route: 042
     Dates: start: 20050302
  2. PREDNISONE [Concomitant]
     Dates: start: 20050226
  3. ASPIRIN [Concomitant]
     Dates: start: 20050226
  4. LIPITOR [Concomitant]
  5. ALBUTEROL [Concomitant]
  6. INSULIN [Concomitant]
     Dates: start: 20050226
  7. DIOVAN [Concomitant]
     Dates: start: 20050304
  8. PHOSLO [Concomitant]
     Dates: start: 20050226
  9. FOLIC ACID [Concomitant]
     Dates: start: 20050226
  10. PREVACID [Concomitant]
     Dates: start: 20050226
  11. ALLOPURINOL [Concomitant]
     Dates: start: 20050226
  12. COLCHICINE [Concomitant]
     Dates: start: 20050226
  13. ROCALTROL [Concomitant]
     Dates: start: 20050226
  14. IMDUR [Concomitant]
     Dates: start: 20050226
  15. METOPROLOL TARTRATE [Concomitant]
     Dates: start: 20050226

REACTIONS (5)
  - DYSPNOEA [None]
  - FEELING ABNORMAL [None]
  - HYPOTENSION [None]
  - THROAT TIGHTNESS [None]
  - TREMOR [None]
